FAERS Safety Report 24149477 (Version 1)
Quarter: 2024Q3

REPORT INFORMATION
  Report Type: Other
  Country: FR (occurrence: FR)
  Receive Date: 20240730
  Receipt Date: 20240730
  Transmission Date: 20241016
  Serious: Yes (Other)
  Sender: VELOXIS PHARMACEUTICALS
  Company Number: FR-AFSSAPS-TS2024000838

PATIENT
  Age: 75 Year
  Sex: Male

DRUGS (1)
  1. ENVARSUS XR [Suspect]
     Active Substance: TACROLIMUS
     Indication: Renal transplant
     Dosage: 8 MILLIGRAM, QD
     Route: 048
     Dates: start: 20240623, end: 20240711

REACTIONS (2)
  - Encephalopathy [Recovered/Resolved]
  - Tremor [Recovered/Resolved]

NARRATIVE: CASE EVENT DATE: 20240706
